FAERS Safety Report 4484223-1 (Version None)
Quarter: 2004Q4

REPORT INFORMATION
  Report Type: 
  Country: None (occurrence: None)
  Receive Date: 20041025
  Receipt Date: 20031126
  Transmission Date: 20050328
  Serious: Yes (Hospitalization, Disabling)
  Sender: FDA-Public Use
  Company Number: US-GLAXOSMITHKLINE-A0441716A

PATIENT
  Age: 57 Year
  Sex: Female
  Weight: 95.5 kg

DRUGS (20)
  1. AVANDIA [Suspect]
     Dosage: 8MG PER DAY
     Route: 048
     Dates: start: 20000601, end: 20030916
  2. MONOPRIL [Concomitant]
     Dosage: 20MG PER DAY
     Route: 048
  3. ECOTRIN [Concomitant]
     Dosage: 500MG TWICE PER DAY
     Route: 048
  4. GLUCOTROL XL [Concomitant]
     Dosage: 10MG IN THE MORNING
     Route: 048
  5. GLUCOTROL XL [Concomitant]
     Dosage: 5MG AT NIGHT
     Route: 048
  6. GLUCOPHAGE [Concomitant]
     Dosage: 1000MG TWICE PER DAY
     Route: 048
  7. FUROSEMIDE [Concomitant]
     Dosage: 20MG PER DAY
     Route: 048
  8. K-DUR 10 [Concomitant]
     Dosage: 10MEQ PER DAY
     Route: 048
  9. IMDUR [Concomitant]
     Dosage: 30MG PER DAY
     Route: 048
  10. NITROGLYCERIN [Concomitant]
     Dosage: .4MG AS REQUIRED
     Route: 060
  11. ACCUPRIL [Concomitant]
     Indication: DRUG USE FOR UNKNOWN INDICATION
     Route: 048
  12. LIPITOR [Concomitant]
     Indication: DRUG USE FOR UNKNOWN INDICATION
     Dosage: 20MG PER DAY
     Route: 048
  13. ULTRAM [Concomitant]
     Indication: DRUG USE FOR UNKNOWN INDICATION
     Route: 048
  14. ALBUTEROL [Concomitant]
     Indication: DRUG USE FOR UNKNOWN INDICATION
     Route: 055
  15. SEREVENT [Concomitant]
     Indication: DRUG USE FOR UNKNOWN INDICATION
     Route: 055
  16. GATIFLOXACIN [Concomitant]
     Indication: DRUG USE FOR UNKNOWN INDICATION
  17. SOLU-CORTEF [Concomitant]
     Indication: DRUG USE FOR UNKNOWN INDICATION
     Dates: start: 20040224
  18. HEPARIN [Concomitant]
     Indication: DRUG USE FOR UNKNOWN INDICATION
  19. LIDOCAINE [Concomitant]
     Indication: DRUG USE FOR UNKNOWN INDICATION
     Dates: start: 20040224
  20. FAMOTIDINE [Concomitant]
     Indication: DRUG USE FOR UNKNOWN INDICATION

REACTIONS (4)
  - ASTHENIA [None]
  - CARDIAC FAILURE CONGESTIVE [None]
  - CHEST PAIN [None]
  - DYSPNOEA [None]
